FAERS Safety Report 8901655 (Version 2)
Quarter: 2013Q1

REPORT INFORMATION
  Report Type: Spontaneous
  Country: US (occurrence: None)
  Receive Date: 20121031
  Receipt Date: 20121231
  Transmission Date: 20140127
  Serious: Yes (Hospitalization)
  Sender: FDA-Public Use
  Company Number: ACO_32040_2012

PATIENT
  Age: 59 Year
  Sex: Female

DRUGS (14)
  1. AMPYRA (DALFAMPRIDINE) TABLET, 10MG [Suspect]
     Indication: PRODUCT USED FOR UNKNOWN INDICATION
     Route: 048
     Dates: start: 20110505, end: 2012
  2. AMITRIPTYLINE HCL (AMITRIPTYLINE HYDROCHLORIDE) [Concomitant]
  3. ASPIRIN LOW (ACETYLSALICYLIC ACID) [Concomitant]
  4. BACLOFEN (BACLOFEN) [Concomitant]
  5. BETASERON (INTERFERON BETA-1B) [Concomitant]
  6. BUSPIRONE HYDROCHLORIDE (BUSPIRONE HYDROCHLORIDE) [Concomitant]
  7. FOLIC ACID (FOLIC ACID) [Concomitant]
  8. GABAPENTIN (GABAPENTIN) [Concomitant]
  9. HYDROCHLOROTHIAZIDE (HYDROCHLOROTHIAZIDE) [Concomitant]
  10. OSCAL 500 + D (CALCIUM CARBONATE, ERGOCALCIFEROL) [Concomitant]
  11. OXYBUTYNIN CHLORIDE (OXYBUTYNIN HYDROCHLORIDE) [Concomitant]
  12. PRAVASTATIN SODIUM (PRAVASTATIN SODIUM) [Concomitant]
  13. TRAMADOL HCL (TRAMADOL HYDROCHLORIDE) [Concomitant]
  14. VOLTAREN (DICLOFENAC SODIUM) [Concomitant]

REACTIONS (4)
  - Cystitis [None]
  - Gait disturbance [None]
  - Pain [None]
  - Drug dose omission [None]
